FAERS Safety Report 8609506-2 (Version None)
Quarter: 2012Q3

REPORT INFORMATION
  Report Type: 
  Country: None (occurrence: None)
  Receive Date: 20120821
  Receipt Date: 20120809
  Transmission Date: 20120928
  Serious: Yes (Hospitalization)
  Sender: FDA-Public Use
  Company Number: FR-PFIZER INC-2012190870

PATIENT
  Age: 65 Year
  Sex: Female

DRUGS (8)
  1. AVASTIN [Suspect]
     Indication: BREAST CANCER
     Dosage: UNK
     Route: 042
     Dates: start: 20120201, end: 20120716
  2. MIDODRINE HYDROCHLORIDE [Suspect]
     Indication: ORTHOSTATIC HYPOTENSION
     Dosage: UNK
     Route: 048
     Dates: start: 20120622, end: 20120716
  3. CHLORPROMAZINE HCL [Suspect]
     Indication: MAJOR DEPRESSION
     Dosage: 200 DROP(S)
     Route: 048
     Dates: start: 20120620, end: 20120628
  4. NEXIUM [Concomitant]
     Dosage: UNK
     Dates: end: 20100625
  5. ZOFRAN [Suspect]
     Indication: VOMITING
     Dosage: 8 MG, WEEKLY
     Route: 048
     Dates: start: 20120201, end: 20120716
  6. ZYPREXA [Suspect]
     Indication: MAJOR DEPRESSION
     Dosage: 10 MG, 1X/DAY
     Route: 048
     Dates: start: 20120628, end: 20120716
  7. PACLITAXEL [Suspect]
     Indication: BREAST CANCER RECURRENT
     Dosage: UNK
     Route: 042
     Dates: start: 20120201, end: 20120716
  8. ANAFRANIL [Suspect]
     Indication: MAJOR DEPRESSION
     Dosage: 150 MG, 1X/DAY
     Route: 048
     Dates: start: 20120622

REACTIONS (3)
  - URTICARIA [None]
  - HEPATOCELLULAR INJURY [None]
  - CHOLESTASIS [None]
